FAERS Safety Report 4463436-9 (Version None)
Quarter: 2004Q3

REPORT INFORMATION
  Report Type: 
  Country: None (occurrence: None)
  Receive Date: 20040928
  Receipt Date: 20040920
  Transmission Date: 20050211
  Serious: Yes (Other)
  Sender: FDA-Public Use
  Company Number: 209167

PATIENT
  Age: 59 Year
  Sex: Female

DRUGS (1)
  1. XOLAIR [Suspect]
     Indication: ASTHMA
     Dosage: 150 MG
     Dates: start: 20040901, end: 20040901

REACTIONS (3)
  - ANAPHYLACTIC REACTION [None]
  - PARAESTHESIA ORAL [None]
  - TONGUE DISORDER [None]
